FAERS Safety Report 11045038 (Version 1)
Quarter: 2015Q2

REPORT INFORMATION
  Report Type: Spontaneous
  Country: US (occurrence: US)
  Receive Date: 20150417
  Receipt Date: 20150417
  Transmission Date: 20150821
  Serious: Yes (Other)
  Sender: FDA-Public Use
  Company Number: US-PFIZER INC-2015126348

PATIENT
  Age: 54 Year
  Sex: Female
  Weight: 48 kg

DRUGS (3)
  1. LYRICA [Suspect]
     Active Substance: PREGABALIN
     Indication: POSTOPERATIVE CARE
     Dosage: 150 MG, 5 TIMES A DAY
     Route: 048
     Dates: end: 20150212
  2. LYRICA [Suspect]
     Active Substance: PREGABALIN
     Indication: FIBROMYALGIA
  3. NORCO [Concomitant]
     Active Substance: ACETAMINOPHEN\HYDROCODONE BITARTRATE
     Dosage: 225 MG, 4X/DAY

REACTIONS (4)
  - Mental status changes [Unknown]
  - Prescribed overdose [Unknown]
  - Drug dependence [Unknown]
  - Hallucination [Recovered/Resolved]

NARRATIVE: CASE EVENT DATE: 20150213
